FAERS Safety Report 19491285 (Version 2)
Quarter: 2021Q3

REPORT INFORMATION
  Report Type: Spontaneous
  Country: OM (occurrence: OM)
  Receive Date: 20210705
  Receipt Date: 20210709
  Transmission Date: 20211014
  Serious: Yes (Other)
  Sender: FDA-Public Use
  Company Number: OM-STRIDES ARCOLAB LIMITED-2021SP007227

PATIENT
  Age: 52 Year
  Sex: Male

DRUGS (22)
  1. OFLOXACIN. [Concomitant]
     Active Substance: OFLOXACIN
     Indication: RETINAL VEIN OCCLUSION
     Dosage: UNK
     Route: 061
  2. RANIBIZUMAB. [Concomitant]
     Active Substance: RANIBIZUMAB
     Indication: MACULAR OEDEMA
  3. CIPROFLOXACIN. [Concomitant]
     Active Substance: CIPROFLOXACIN
     Dosage: MAINTAINED ON 750 MILLIGRAM, BID
     Route: 065
  4. DEXAMETHASONE. [Suspect]
     Active Substance: DEXAMETHASONE
     Indication: ENDOPHTHALMITIS
     Dosage: UNK
     Route: 065
  5. OFLOXACIN. [Concomitant]
     Active Substance: OFLOXACIN
     Indication: MACULAR OEDEMA
  6. OFLOXACIN. [Concomitant]
     Active Substance: OFLOXACIN
     Indication: GLAUCOMA
  7. POVIDONE?IODINE. [Concomitant]
     Active Substance: POVIDONE-IODINE
     Indication: INTRAOCULAR PRESSURE INCREASED
     Dosage: UNK; INTO THE CONJUNCTIVAL SAC
     Route: 031
  8. CEFTAZIDIME. [Concomitant]
     Active Substance: CEFTAZIDIME
     Dosage: UNK
  9. GENTAMICIN. [Concomitant]
     Active Substance: GENTAMICIN
     Indication: ENDOPHTHALMITIS
     Dosage: TOPICAL FORTIFIED
     Route: 061
  10. PREDNISOLONE. [Suspect]
     Active Substance: PREDNISOLONE
     Dosage: 1% DROPS OF PREDNISOLONE ACETATE HOURLY
     Route: 065
  11. PREDNISOLONE. [Suspect]
     Active Substance: PREDNISOLONE
     Dosage: UNK; TAPERED
     Route: 061
  12. RANIBIZUMAB. [Concomitant]
     Active Substance: RANIBIZUMAB
     Indication: GLAUCOMA
  13. ATROPINE. [Concomitant]
     Active Substance: ATROPINE
     Indication: ENDOPHTHALMITIS
     Dosage: UNK
     Route: 065
  14. CIPROFLOXACIN. [Concomitant]
     Active Substance: CIPROFLOXACIN
     Indication: ENDOPHTHALMITIS
     Dosage: LOADING DOSE OF 1 G
     Route: 065
  15. PREDNISOLONE. [Suspect]
     Active Substance: PREDNISOLONE
     Dosage: UNK; TAPERED
     Route: 048
  16. RANIBIZUMAB. [Concomitant]
     Active Substance: RANIBIZUMAB
     Indication: RETINAL VEIN OCCLUSION
     Dosage: 0.5 MILLIGRAM
  17. VANCOMYCIN [Concomitant]
     Active Substance: VANCOMYCIN
     Dosage: UNK
     Route: 065
  18. PREDNISOLONE. [Suspect]
     Active Substance: PREDNISOLONE
     Indication: ENDOPHTHALMITIS
     Dosage: 30 MILLIGRAM, QD
     Route: 048
  19. VANCOMYCIN [Concomitant]
     Active Substance: VANCOMYCIN
     Indication: ENDOPHTHALMITIS
     Dosage: 1 MG/0.1 ML
  20. CEFTAZIDIME. [Concomitant]
     Active Substance: CEFTAZIDIME
     Indication: ENDOPHTHALMITIS
     Dosage: 2.25 MG/0.1 ML
  21. CEFUROXIME. [Concomitant]
     Active Substance: CEFUROXIME
     Indication: ENDOPHTHALMITIS
     Dosage: TOPICAL FORTIFIED
     Route: 061
  22. POVIDONE?IODINE. [Concomitant]
     Active Substance: POVIDONE-IODINE
     Dosage: UNK
     Route: 031

REACTIONS (3)
  - Fibrin increased [Recovered/Resolved]
  - Condition aggravated [Recovered/Resolved]
  - Paradoxical drug reaction [Recovered/Resolved]
